FAERS Safety Report 12950002 (Version 1)
Quarter: 2016Q4

REPORT INFORMATION
  Report Type: Spontaneous
  Country: US (occurrence: US)
  Receive Date: 20161117
  Receipt Date: 20161117
  Transmission Date: 20170207
  Serious: Yes (Other)
  Sender: FDA-Public Use
  Company Number: US-JNJFOC-20161107220

PATIENT
  Age: 40 Year
  Sex: Male

DRUGS (1)
  1. DARATUMUMAB [Suspect]
     Active Substance: DARATUMUMAB
     Indication: PLASMA CELL MYELOMA
     Route: 042

REACTIONS (5)
  - Neutropenia [Unknown]
  - Infusion related reaction [Unknown]
  - Packed red blood cell transfusion [Unknown]
  - Escherichia infection [Unknown]
  - Diarrhoea infectious [Unknown]
